FAERS Safety Report 16779413 (Version 1)
Quarter: 2019Q3

REPORT INFORMATION
  Report Type: Spontaneous
  Country: US (occurrence: US)
  Receive Date: 20190906
  Receipt Date: 20190906
  Transmission Date: 20191005
  Serious: Yes (Hospitalization, Other)
  Sender: FDA-Public Use
  Company Number: US-APOTEX-2019AP021511

PATIENT
  Age: 23 Month
  Sex: Female

DRUGS (1)
  1. TEMOZOLOMIDE. [Suspect]
     Active Substance: TEMOZOLOMIDE
     Indication: PRODUCT USED FOR UNKNOWN INDICATION
     Dosage: UNK
     Route: 065

REACTIONS (5)
  - Decreased activity [Unknown]
  - Brain injury [Not Recovered/Not Resolved]
  - Aplastic anaemia [Unknown]
  - Accidental exposure to product by child [Unknown]
  - Pancytopenia [Recovering/Resolving]
